FAERS Safety Report 14832853 (Version 1)
Quarter: 2018Q2

REPORT INFORMATION
  Report Type: Spontaneous
  Country: FR (occurrence: FR)
  Receive Date: 20180501
  Receipt Date: 20180501
  Transmission Date: 20180711
  Serious: Yes (Other)
  Sender: FDA-Public Use
  Company Number: FR-MERCK KGAA-2046902

PATIENT
  Age: 55 Year
  Sex: Female

DRUGS (1)
  1. NOVOTHYROX [Suspect]
     Active Substance: LEVOTHYROXINE SODIUM
     Indication: THYROID DISORDER
     Dates: start: 2017, end: 2017

REACTIONS (21)
  - Loss of consciousness [None]
  - Bone pain [None]
  - Dizziness [Recovering/Resolving]
  - Disturbance in attention [None]
  - Muscular weakness [Recovering/Resolving]
  - Irritability [None]
  - Loss of personal independence in daily activities [None]
  - Dysstasia [None]
  - Anxiety [None]
  - Alopecia [Recovering/Resolving]
  - Fatigue [None]
  - Amnesia [None]
  - Impaired work ability [None]
  - Aphasia [None]
  - Hypersomnia [None]
  - Gait disturbance [None]
  - Muscle spasms [Recovering/Resolving]
  - Middle insomnia [None]
  - Hallucination [None]
  - Negative thoughts [None]
  - Loss of libido [None]

NARRATIVE: CASE EVENT DATE: 2017
